FAERS Safety Report 8180358-0 (Version None)
Quarter: 2012Q1

REPORT INFORMATION
  Report Type: 
  Country: None (occurrence: None)
  Receive Date: 20120302
  Receipt Date: 20120229
  Transmission Date: 20120608
  Serious: Yes (Hospitalization, Other)
  Sender: FDA-Public Use
  Company Number: US-PFIZER INC-2012054372

PATIENT
  Sex: Male
  Weight: 72.562 kg

DRUGS (2)
  1. SIMVASTATIN [Concomitant]
     Indication: BLOOD CHOLESTEROL INCREASED
     Dosage: UNK
  2. LIPITOR [Suspect]
     Dosage: UNK
     Route: 048
     Dates: start: 20070101

REACTIONS (6)
  - BRAIN INJURY [None]
  - ROAD TRAFFIC ACCIDENT [None]
  - THROMBOSIS [None]
  - HEARING IMPAIRED [None]
  - BRAIN OEDEMA [None]
  - CEREBRAL HAEMORRHAGE [None]
